FAERS Safety Report 6593067-6 (Version None)
Quarter: 2010Q1

REPORT INFORMATION
  Report Type: 
  Country: None (occurrence: None)
  Receive Date: 20100218
  Receipt Date: 20100218
  Transmission Date: 20100710
  Serious: No
  Sender: FDA-Public Use
  Company Number: None

PATIENT
  Age: 60 Year
  Sex: Male

DRUGS (1)
  1. HEPARIN [Suspect]
     Indication: ACUTE CORONARY SYNDROME
     Dosage: 13 ML PER HOUR IV
     Route: 042

REACTIONS (1)
  - THROMBOCYTOPENIA [None]
